FAERS Safety Report 6534976-3 (Version None)
Quarter: 2010Q1

REPORT INFORMATION
  Report Type: 
  Country: None (occurrence: None)
  Receive Date: 20100111
  Receipt Date: 20100111
  Transmission Date: 20100710
  Serious: Yes (Hospitalization, Other)
  Sender: FDA-Public Use
  Company Number: None

PATIENT
  Age: 62 Year
  Sex: Female

DRUGS (1)
  1. QUINAPRIL [Suspect]
     Dosage: 20 MG PO DAILY
     Route: 048
     Dates: end: 20090910

REACTIONS (2)
  - ANGIOEDEMA [None]
  - LIP SWELLING [None]
